FAERS Safety Report 4840259-X (Version None)
Quarter: 2005Q4

REPORT INFORMATION
  Report Type: 
  Country: None (occurrence: None)
  Receive Date: 20051129
  Receipt Date: 20051004
  Transmission Date: 20060501
  Serious: Yes (Hospitalization, Disabling, Other)
  Sender: FDA-Public Use
  Company Number: US-MERCK-0510USA02439

PATIENT
  Age: 61 Year
  Sex: Male
  Weight: 98 kg

DRUGS (7)
  1. VIOXX [Suspect]
     Route: 048
     Dates: start: 20000913, end: 20040301
  2. VIOXX [Suspect]
     Route: 048
     Dates: start: 20000913, end: 20040301
  3. NEURONTIN [Concomitant]
     Route: 065
  4. ELAVIL [Concomitant]
     Route: 048
  5. ADVIL [Concomitant]
     Route: 065
  6. NORFLEX [Concomitant]
     Route: 065
  7. [THERAPY UNSPECIFIED] [Concomitant]
     Route: 065

REACTIONS (5)
  - ADVERSE EVENT [None]
  - BACK DISORDER [None]
  - CHEST PAIN [None]
  - HEAD INJURY [None]
  - MYOCARDIAL INFARCTION [None]
